FAERS Safety Report 13825776 (Version 3)
Quarter: 2018Q2

REPORT INFORMATION
  Report Type: Report from Study
  Country: US (occurrence: US)
  Receive Date: 20170802
  Receipt Date: 20180621
  Transmission Date: 20180711
  Serious: Yes (Hospitalization)
  Sender: FDA-Public Use
  Company Number: US-ACTELION-A-NJ2017-157428

PATIENT
  Age: 58 Year
  Sex: Female

DRUGS (2)
  1. OPSUMIT [Suspect]
     Active Substance: MACITENTAN
     Indication: PULMONARY ARTERIAL HYPERTENSION
     Dosage: 10 MG, QD
     Route: 048
     Dates: start: 20170501
  2. OPSUMIT [Suspect]
     Active Substance: MACITENTAN
     Dosage: UNK, BID
     Route: 048
     Dates: start: 20180608

REACTIONS (9)
  - Bone pain [Unknown]
  - Oxygen saturation decreased [Unknown]
  - Chest pain [Unknown]
  - Pneumonia [Unknown]
  - Hypercapnia [Unknown]
  - Acute respiratory failure [Unknown]
  - Chronic obstructive pulmonary disease [Unknown]
  - Bronchitis [Unknown]
  - Atypical pneumonia [Unknown]
